FAERS Safety Report 10449768 (Version 1)
Quarter: 2014Q3

REPORT INFORMATION
  Report Type: Spontaneous
  Country: US (occurrence: None)
  Receive Date: 20140911
  Receipt Date: 20140911
  Transmission Date: 20150326
  Serious: No
  Sender: FDA-Public Use
  Company Number: None

PATIENT
  Age: 62 Year
  Sex: Male

DRUGS (1)
  1. OMNITROPE [Suspect]
     Active Substance: SOMATROPIN
     Indication: CACHEXIA
     Route: 058
     Dates: start: 20140712, end: 20140831

REACTIONS (4)
  - Rash generalised [None]
  - Injection site pruritus [None]
  - Hypersensitivity [None]
  - Injection site erythema [None]

NARRATIVE: CASE EVENT DATE: 201407
